FAERS Safety Report 6760915-6 (Version None)
Quarter: 2010Q2

REPORT INFORMATION
  Report Type: 
  Country: None (occurrence: None)
  Receive Date: 20100608
  Receipt Date: 20100531
  Transmission Date: 20101027
  Serious: Yes (Other)
  Sender: FDA-Public Use
  Company Number: NO-AMGEN-KDL415365

PATIENT
  Sex: Male

DRUGS (1)
  1. ARANESP [Suspect]
     Indication: DIALYSIS
     Route: 042

REACTIONS (2)
  - APLASIA PURE RED CELL [None]
  - HAEMOGLOBIN DECREASED [None]
